FAERS Safety Report 4987716-3 (Version None)
Quarter: 2006Q2

REPORT INFORMATION
  Report Type: 
  Country: None (occurrence: None)
  Receive Date: 20060424
  Receipt Date: 20060411
  Transmission Date: 20061013
  Serious: Yes (Other)
  Sender: FDA-Public Use
  Company Number: FR200604001931

PATIENT
  Age: 12 Year
  Sex: Female

DRUGS (2)
  1. ZYPREXA [Suspect]
     Indication: CHILDHOOD PSYCHOSIS
     Dosage: 10 MG, DAILY (1/D), ORAL, 15 MG, DAILY (1/D), ORAL
     Route: 048
     Dates: start: 20060329, end: 20060401
  2. ZYPREXA [Suspect]
     Indication: CHILDHOOD PSYCHOSIS
     Dosage: 10 MG, DAILY (1/D), ORAL, 15 MG, DAILY (1/D), ORAL
     Route: 048
     Dates: start: 20060402

REACTIONS (1)
  - ELECTROCARDIOGRAM QT CORRECTED INTERVAL PROLONGED [None]
